FAERS Safety Report 5303628-X (Version None)
Quarter: 2007Q2

REPORT INFORMATION
  Report Type: 
  Country: None (occurrence: None)
  Receive Date: 20070420
  Receipt Date: 20070411
  Transmission Date: 20071010
  Serious: Yes (Hospitalization)
  Sender: FDA-Public Use
  Company Number: FI-PFIZER INC-2007019614

PATIENT
  Age: 39 Year
  Sex: Female

DRUGS (6)
  1. LYRICA [Suspect]
     Indication: BACK PAIN
     Route: 048
     Dates: start: 20061228, end: 20070110
  2. PANACOD [Concomitant]
     Indication: BACK PAIN
  3. ARCOXIA [Concomitant]
     Indication: BACK PAIN
     Route: 048
  4. TRIPTYL [Concomitant]
     Indication: BACK PAIN
     Route: 048
  5. PANADOL [Concomitant]
     Indication: BACK PAIN
     Route: 048
  6. MIACALCIN [Concomitant]
     Route: 045

REACTIONS (2)
  - MUSCLE SPASTICITY [None]
  - MUSCLE TWITCHING [None]
